FAERS Safety Report 6253873-4 (Version None)
Quarter: 2009Q3

REPORT INFORMATION
  Report Type: 
  Country: None (occurrence: None)
  Receive Date: 20090702
  Receipt Date: 20090622
  Transmission Date: 20100115
  Serious: Yes (Hospitalization, Other)
  Sender: FDA-Public Use
  Company Number: PHHY2009FR26067

PATIENT
  Age: 68 Year
  Sex: Female

DRUGS (3)
  1. TEGRETOL-XR [Suspect]
     Dosage: 200 MG/DAY
  2. IMOVANE [Suspect]
     Indication: SLEEP DISORDER
     Dosage: 7.5 MG/DAY
  3. ATARAX [Suspect]
     Dosage: 1 DF, UNK

REACTIONS (4)
  - CONFUSIONAL STATE [None]
  - FALL [None]
  - FEMORAL NECK FRACTURE [None]
  - PAIN IN EXTREMITY [None]
